FAERS Safety Report 18770383 (Version 1)
Quarter: 2021Q1

REPORT INFORMATION
  Report Type: Spontaneous
  Country: US (occurrence: US)
  Receive Date: 20210121
  Receipt Date: 20210121
  Transmission Date: 20210419
  Serious: No
  Sender: FDA-Public Use
  Company Number: US-GILEAD-2021-0513723

PATIENT
  Age: 25 Year
  Sex: Male

DRUGS (1)
  1. DESCOVY [Suspect]
     Active Substance: EMTRICITABINE\TENOFOVIR ALAFENAMIDE FUMARATE
     Indication: PROPHYLAXIS AGAINST HIV INFECTION
     Dosage: UNK
     Route: 048
     Dates: start: 2020

REACTIONS (8)
  - Paraesthesia [Not Recovered/Not Resolved]
  - Neuropathy peripheral [Unknown]
  - Nausea [Recovering/Resolving]
  - Stress [Unknown]
  - Hypoaesthesia [Recovered/Resolved]
  - Anxiety [Not Recovered/Not Resolved]
  - Diarrhoea [Recovering/Resolving]
  - Sensory loss [Recovered/Resolved]

NARRATIVE: CASE EVENT DATE: 2020
